FAERS Safety Report 7521248-3 (Version None)
Quarter: 2011Q2

REPORT INFORMATION
  Report Type: 
  Country: None (occurrence: None)
  Receive Date: 20110603
  Receipt Date: 20101214
  Transmission Date: 20111010
  Serious: Yes (Hospitalization, Other)
  Sender: FDA-Public Use
  Company Number: CO-BAYER-201017211LA

PATIENT
  Sex: Female

DRUGS (2)
  1. BETAFERON [Suspect]
     Dosage: AS USED DOSE: UNK
     Route: 058
     Dates: start: 20070603, end: 20100101
  2. BETAFERON [Suspect]

REACTIONS (4)
  - ECCHYMOSIS [None]
  - HEPATOMEGALY [None]
  - VASCULITIS [None]
  - ASCITES [None]
